FAERS Safety Report 9173247 (Version 1)
Quarter: 2013Q1

REPORT INFORMATION
  Report Type: Spontaneous
  Country: US (occurrence: None)
  Receive Date: 20130319
  Receipt Date: 20130319
  Transmission Date: 20140127
  Serious: Yes (Hospitalization)
  Sender: FDA-Public Use
  Company Number: None

PATIENT
  Sex: 0

DRUGS (1)
  1. LISINOPRIL 5MG [Suspect]
     Dates: start: 20061006, end: 20091006

REACTIONS (5)
  - Vertigo [None]
  - Hypoaesthesia [None]
  - Burning sensation [None]
  - Hypertension [None]
  - Palpitations [None]
